FAERS Safety Report 4296016-9 (Version None)
Quarter: 2004Q1

REPORT INFORMATION
  Report Type: 
  Country: None (occurrence: None)
  Receive Date: 20040212
  Receipt Date: 20040202
  Transmission Date: 20041129
  Serious: Yes (Life-Threatening, Hospitalization)
  Sender: FDA-Public Use
  Company Number: ZONI001246

PATIENT
  Age: 60 Year
  Sex: Male
  Weight: 99.7913 kg

DRUGS (7)
  1. ZONEGRAN [Suspect]
     Indication: PAIN
     Dosage: 200 MG DAILY ORAL
     Route: 048
     Dates: start: 20030820, end: 20030908
  2. ZANAFLEX [Suspect]
     Indication: ARTHRALGIA
     Dosage: 2 MG DAILY ORAL
     Route: 048
     Dates: start: 20030812
  3. VIOXX [Concomitant]
  4. NEXIUM [Concomitant]
  5. SKELAXIN [Concomitant]
  6. ULTRACET (TRAMADOL HYDROCHLORIDE/ACETAMINOPHEN) [Concomitant]
  7. KETOPROFEN [Concomitant]

REACTIONS (9)
  - ASTHENIA [None]
  - BALANCE DISORDER [None]
  - CAROTID ARTERY STENOSIS [None]
  - CEREBROVASCULAR ACCIDENT [None]
  - COORDINATION ABNORMAL [None]
  - DYSARTHRIA [None]
  - MONOPLEGIA [None]
  - NAUSEA [None]
  - PALPITATIONS [None]
